FAERS Safety Report 19686945 (Version 3)
Quarter: 2021Q3

REPORT INFORMATION
  Report Type: Report from Study
  Country: IT (occurrence: IT)
  Receive Date: 20210811
  Receipt Date: 20210916
  Transmission Date: 20211014
  Serious: Yes (Other)
  Sender: FDA-Public Use
  Company Number: IT-MYLANLABS-2021M1049253

PATIENT
  Age: 73 Year
  Sex: Female
  Weight: 70 kg

DRUGS (9)
  1. FULVESTRANT. [Suspect]
     Active Substance: FULVESTRANT
     Indication: BREAST CANCER
     Dosage: 500 MILLIGRAM, Q4W
     Route: 030
     Dates: start: 20200608
  2. PERTUZUMAB. [Suspect]
     Active Substance: PERTUZUMAB
     Indication: BREAST CANCER
     Dosage: 420 MILLIGRAM, Q3W(RECENT DOSE WAS RECEIVED ON 27/MAR/2020)
     Route: 042
     Dates: start: 20181112
  3. PALBOCICLIB [Suspect]
     Active Substance: PALBOCICLIB
     Indication: BREAST CANCER
     Dosage: 125 MILLIGRAM
     Route: 048
     Dates: start: 20200608
  4. OLPRESS [Concomitant]
     Active Substance: OLMESARTAN MEDOXOMIL
     Dosage: UNK (ONGOING, CHECKED)
     Dates: start: 20191113
  5. EXEMESTANE. [Suspect]
     Active Substance: EXEMESTANE
     Indication: BREAST CANCER
     Dosage: 25 MILLIGRAM, QD(RECENT DOSE WAS RECEIVED ON 07/JUN/2020)
     Route: 048
     Dates: start: 20190320
  6. DIBASE [Concomitant]
     Active Substance: CHOLECALCIFEROL
     Dosage: UNK (ONGOING, CHECKED)
     Dates: start: 20190529
  7. NEBIVOLOL. [Concomitant]
     Active Substance: NEBIVOLOL
     Dosage: ONGOING
  8. PACLITAXEL. [Suspect]
     Active Substance: PACLITAXEL
     Indication: BREAST CANCER
     Dosage: 145 MILLIGRAM, QW (RECENT DOSE RECEIVED ON 06/MAR/2019)
     Route: 042
     Dates: start: 20181112
  9. TRASTUZUMAB. [Suspect]
     Active Substance: TRASTUZUMAB
     Indication: BREAST CANCER
     Dosage: 6 MILLIGRAM/KILOGRAM, Q3W (RECENT DOSE WAS RECEIVED ON 21/JAN/2019)
     Route: 041
     Dates: start: 20181112

REACTIONS (1)
  - Neutropenia [Recovered/Resolved]

NARRATIVE: CASE EVENT DATE: 20200622
